FAERS Safety Report 8429335-2 (Version None)
Quarter: 2012Q2

REPORT INFORMATION
  Report Type: 
  Country: None (occurrence: None)
  Receive Date: 20120612
  Receipt Date: 20120604
  Transmission Date: 20120825
  Serious: Yes (Hospitalization)
  Sender: FDA-Public Use
  Company Number: US-BAYER-201033137NA

PATIENT
  Age: 39 Year
  Sex: Female
  Weight: 60 kg

DRUGS (18)
  1. YAZ [Suspect]
     Indication: ORAL CONTRACEPTION
     Dosage: UNK UNK, QD
     Route: 048
     Dates: start: 20081001, end: 20081001
  2. SERTRALINE HYDROCHLORIDE [Concomitant]
     Indication: DEPRESSION
     Dosage: UNK
     Dates: start: 20080601, end: 20090601
  3. NEXIUM [Concomitant]
     Indication: GASTROOESOPHAGEAL REFLUX DISEASE
     Dosage: UNK
     Route: 048
     Dates: start: 20081212, end: 20090301
  4. TRAMADOL HCL [Concomitant]
     Dosage: 50 MG, UNK
     Dates: start: 20081015
  5. ALPRAZOLAM [Concomitant]
     Dosage: 0.25 MG, QD
     Route: 048
  6. AZITHROMYCIN [Concomitant]
     Indication: INFECTION
     Dosage: UNK
     Dates: start: 20081205, end: 20081210
  7. BROMOCRIPTINE MESYLATE [Concomitant]
     Dosage: 2.5 MG, UNK
     Dates: start: 20081008
  8. VICODIN [Concomitant]
     Dosage: 500 MG/5 MG QID PRN
     Route: 048
  9. YAZ [Suspect]
     Indication: PREMENSTRUAL SYNDROME
  10. MAXALT [Concomitant]
     Dosage: UNK
     Dates: start: 20081105, end: 20081205
  11. LUNESTA [Concomitant]
     Indication: INSOMNIA
     Dosage: UNK
     Dates: start: 20080501, end: 20090111
  12. NEXIUM [Concomitant]
     Dosage: 20 MG, QD
     Route: 048
  13. MAXALT [Concomitant]
     Dosage: UNK
     Dates: start: 20081027, end: 20081102
  14. ASACOL [Concomitant]
     Indication: DIARRHOEA
     Dosage: UNK
     Dates: start: 20081211, end: 20090111
  15. PROTONIX [Concomitant]
     Dosage: 40 MG, QD
     Route: 048
  16. CELEBREX [Concomitant]
     Dosage: 200 MG, QD
     Route: 048
  17. CEREBREX [Concomitant]
     Dosage: UNK
     Dates: start: 20081212
  18. HYDROCODONE BITARTRATE AND ACETAMINOPHEN [Concomitant]
     Dosage: UNK
     Dates: start: 20081014

REACTIONS (4)
  - ANXIETY [None]
  - FEAR OF DEATH [None]
  - PULMONARY EMBOLISM [None]
  - DEPRESSION [None]
